FAERS Safety Report 5191159-X (Version None)
Quarter: 2006Q4

REPORT INFORMATION
  Report Type: 
  Country: None (occurrence: None)
  Receive Date: 20061226
  Receipt Date: 20061218
  Transmission Date: 20070319
  Serious: Yes (Other)
  Sender: FDA-Public Use
  Company Number: FR-AVENTIS-200614470FR

PATIENT
  Age: 56 Year
  Sex: Female

DRUGS (1)
  1. ARAVA [Suspect]
     Indication: RHEUMATOID ARTHRITIS
     Route: 048

REACTIONS (5)
  - CUTANEOUS LUPUS ERYTHEMATOSUS [None]
  - ERYTHEMA ANNULARE [None]
  - RASH MACULAR [None]
  - RASH MACULO-PAPULAR [None]
  - RHEUMATOID ARTHRITIS [None]
